FAERS Safety Report 6500084-0 (Version None)
Quarter: 2009Q4

REPORT INFORMATION
  Report Type: 
  Country: None (occurrence: None)
  Receive Date: 20091216
  Receipt Date: 20091110
  Transmission Date: 20100525
  Serious: Yes (Other)
  Sender: FDA-Public Use
  Company Number: GB-AMGEN-US379608

PATIENT
  Sex: Female

DRUGS (4)
  1. ENBREL [Suspect]
     Dosage: UNKNOWN
     Route: 050
     Dates: start: 20041207
  2. ENBREL [Suspect]
  3. ALENDRONIC ACID [Concomitant]
     Dosage: UNKNOWN
     Route: 050
  4. DICLOFENAC SODIUM [Concomitant]
     Dosage: UNKNOWN
     Route: 050

REACTIONS (2)
  - DRUG EXPOSURE DURING PREGNANCY [None]
  - STILLBIRTH [None]
